FAERS Safety Report 7992578-6 (Version None)
Quarter: 2011Q4

REPORT INFORMATION
  Report Type: 
  Country: None (occurrence: None)
  Receive Date: 20111219
  Receipt Date: 20111212
  Transmission Date: 20120403
  Serious: Yes (Hospitalization)
  Sender: FDA-Public Use
  Company Number: US-US-EMD SERONO, INC.-7101670

PATIENT
  Sex: Male

DRUGS (2)
  1. REBIF [Suspect]
     Indication: MULTIPLE SCLEROSIS
     Route: 058
     Dates: start: 20021212
  2. REBIF [Suspect]
     Route: 058

REACTIONS (3)
  - PLATELET COUNT DECREASED [None]
  - URINARY TRACT INFECTION [None]
  - THROMBOSIS [None]
